FAERS Safety Report 4393082-7 (Version None)
Quarter: 2004Q3

REPORT INFORMATION
  Report Type: 
  Country: None (occurrence: None)
  Receive Date: 20040702
  Receipt Date: 20040518
  Transmission Date: 20050211
  Serious: Yes (Other)
  Sender: FDA-Public Use
  Company Number: 2004UW06979

PATIENT
  Age: 57 Year
  Sex: Female
  Weight: 63.9572 kg

DRUGS (3)
  1. CRESTOR [Suspect]
     Indication: HYPERLIPIDAEMIA
     Dosage: 10 MG PO
     Route: 048
     Dates: start: 20040326, end: 20040407
  2. PLAVIX [Concomitant]
  3. MIACALCIN [Concomitant]

REACTIONS (3)
  - ARTHROPATHY [None]
  - ASTHENIA [None]
  - MYALGIA [None]
